FAERS Safety Report 7527486-8 (Version None)
Quarter: 2011Q2

REPORT INFORMATION
  Report Type: 
  Country: None (occurrence: None)
  Receive Date: 20110607
  Receipt Date: 20110606
  Transmission Date: 20111010
  Serious: Yes (Hospitalization, Other)
  Sender: FDA-Public Use
  Company Number: US-JNJFOC-20100806907

PATIENT

DRUGS (3)
  1. LEVAQUIN [Suspect]
     Indication: PSEUDOMONAS INFECTION
     Route: 048
     Dates: start: 20041216, end: 20050201
  2. STEROIDS NOS [Suspect]
     Indication: PRODUCT USED FOR UNKNOWN INDICATION
     Route: 065
  3. CIPROFLOXACIN [Suspect]
     Indication: PRODUCT USED FOR UNKNOWN INDICATION
     Route: 065

REACTIONS (2)
  - TENDON RUPTURE [None]
  - LIGAMENT RUPTURE [None]
